FAERS Safety Report 9411758 (Version 1)
Quarter: 2013Q2

REPORT INFORMATION
  Report Type: Spontaneous
  Country: JP (occurrence: None)
  Receive Date: 20130502
  Receipt Date: 20130502
  Transmission Date: 20140414
  Serious: Yes (Other)
  Sender: FDA-Public Use
  Company Number: JP-CLINIGEN HEALTHCARE LIMITED-003053

PATIENT
  Age: 49 Year
  Sex: Male

DRUGS (3)
  1. FOSCAVIR (FOSCAVIR) [Suspect]
     Indication: CYTOMEGALOVIRUS INFECTION
     Route: 041
     Dates: start: 20110928, end: 20110929
  2. PROGRAF [Concomitant]
  3. BACTRAMIN [Concomitant]

REACTIONS (2)
  - Renal impairment [None]
  - Drug ineffective [None]
